FAERS Safety Report 7381950 (Version 5)
Quarter: 2012Q4

REPORT INFORMATION
  Report Type: Report from Study
  Country: US (occurrence: US)
  Receive Date: 20100510
  Receipt Date: 20121107
  Transmission Date: 20130627
  Serious: Yes (Death, Life-Threatening, Hospitalization)
  Sender: FDA-Public Use
  Company Number: US-BRISTOL-MYERS SQUIBB COMPANY-15094162

PATIENT
  Age: 73 Year
  Sex: Male
  Weight: 81 kg

DRUGS (3)
  1. ERBITUX [Suspect]
     Indication: NON-SMALL CELL LUNG CANCER
     Dosage: Cetuximab 250 mg/m2 Days 50,57,64,71,78, 85,92,99,106
     Dates: start: 20100412, end: 20100412
  2. TAXOL [Suspect]
     Indication: NON-SMALL CELL LUNG CANCER
     Dosage: Paclitaxel 200mg/m2 Days 71 and 92
     Dates: start: 20100405, end: 20100405
  3. CARBOPLATIN [Suspect]
     Indication: NON-SMALL CELL LUNG CANCER
     Dosage: Carboplatin AUC=6 Days 71 and 92
     Dates: start: 20100405, end: 20100405

REACTIONS (5)
  - Embolism [Fatal]
  - Dyspnoea [Unknown]
  - Fatigue [Unknown]
  - Cough [Unknown]
  - Abdominal pain upper [Unknown]
